FAERS Safety Report 14085093 (Version 1)
Quarter: 2017Q4

REPORT INFORMATION
  Report Type: Spontaneous
  Country: FR (occurrence: FR)
  Receive Date: 20171013
  Receipt Date: 20171013
  Transmission Date: 20180321
  Serious: Yes (Other)
  Sender: FDA-Public Use
  Company Number: FR-MERCK KGAA-2029890

PATIENT
  Age: 41 Year
  Sex: Female

DRUGS (2)
  1. LEVOTHYROX NF [Suspect]
     Active Substance: LEVOTHYROXINE SODIUM
     Dates: start: 201704
  2. NOVOTHYROX [Suspect]
     Active Substance: LEVOTHYROXINE SODIUM
     Indication: HYPOTHYROIDISM
     Dates: start: 201704

REACTIONS (9)
  - Diarrhoea [Recovering/Resolving]
  - Vertigo [Recovering/Resolving]
  - Conjunctivitis [Recovering/Resolving]
  - Nervousness [Recovering/Resolving]
  - Weight increased [Recovering/Resolving]
  - Abdominal pain [Recovering/Resolving]
  - Depressed mood [Recovering/Resolving]
  - Product formulation issue [Unknown]
  - Fatigue [Recovering/Resolving]

NARRATIVE: CASE EVENT DATE: 201704
